FAERS Safety Report 25644329 (Version 2)
Quarter: 2025Q3

REPORT INFORMATION
  Report Type: Spontaneous
  Country: CN (occurrence: CN)
  Receive Date: 20250805
  Receipt Date: 20250811
  Transmission Date: 20251021
  Serious: Yes (Other)
  Sender: PFIZER
  Company Number: CN-MLMSERVICE-20250724-PI590038-00271-1

PATIENT
  Age: 65 Year
  Sex: Male

DRUGS (3)
  1. METHYLPREDNISOLONE SODIUM SUCCINATE [Suspect]
     Active Substance: METHYLPREDNISOLONE SODIUM SUCCINATE
     Indication: Panniculitis
     Dosage: 40 MG, 1X/DAY INTRAVENOUSLY (IV) FOR 7 DAYS
     Route: 042
  2. PREDNISONE [Suspect]
     Active Substance: PREDNISONE
     Indication: Eosinophilic cellulitis
     Dosage: 30 MG, 1X/DAY
     Route: 048
  3. PREDNISONE [Suspect]
     Active Substance: PREDNISONE
     Dosage: 25 MG, 1X/DAY (DECREASE BEFORE THE ONSET OF THE DISEASE)
     Route: 048

REACTIONS (3)
  - Disseminated mucormycosis [Unknown]
  - Cutaneous mucormycosis [Unknown]
  - Condition aggravated [Unknown]
